FAERS Safety Report 13292117 (Version 1)
Quarter: 2017Q1

REPORT INFORMATION
  Report Type: Spontaneous
  Country: US (occurrence: US)
  Receive Date: 20170303
  Receipt Date: 20170303
  Transmission Date: 20170428
  Serious: No
  Sender: FDA-Public Use
  Company Number: None

PATIENT
  Age: 43 Year
  Sex: Female
  Weight: 69.75 kg

DRUGS (5)
  1. LAMOTRAGINE [Concomitant]
     Active Substance: LAMOTRIGINE
  2. LATUDA [Suspect]
     Active Substance: LURASIDONE HYDROCHLORIDE
     Indication: BIPOLAR DISORDER
     Dosage: ?          QUANTITY:1 CAPSULE(S);?
     Route: 048
     Dates: start: 20151001, end: 20170301
  3. FISH OIL [Concomitant]
     Active Substance: FISH OIL
  4. FETZIMA [Concomitant]
     Active Substance: LEVOMILNACIPRAN HYDROCHLORIDE
  5. DAILY VITAMIN [Concomitant]
     Active Substance: VITAMINS

REACTIONS (4)
  - Lip dry [None]
  - Lip injury [None]
  - Chapped lips [None]
  - Lip swelling [None]
